FAERS Safety Report 5756645-X (Version None)
Quarter: 2008Q2

REPORT INFORMATION
  Report Type: 
  Country: None (occurrence: None)
  Receive Date: 20080603
  Receipt Date: 20080523
  Transmission Date: 20081010
  Serious: Yes (Other)
  Sender: FDA-Public Use
  Company Number: DE-JNJFOC-20080504236

PATIENT
  Age: 66 Year
  Sex: Female
  Weight: 65 kg

DRUGS (7)
  1. REMICADE [Suspect]
     Indication: POLYARTHRITIS
     Route: 042
     Dates: start: 20020101
  2. AZATHIOPRINE [Concomitant]
     Indication: POLYARTHRITIS
  3. PREDNISOLONE [Concomitant]
  4. PANTOPRAZOLE SODIUM [Concomitant]
  5. VIANI DISKUS [Concomitant]
  6. ACTONEL [Concomitant]
  7. DICLOFENAC SODIUM [Concomitant]

REACTIONS (1)
  - SQUAMOUS CELL CARCINOMA [None]
